FAERS Safety Report 17372402 (Version 1)
Quarter: 2020Q1

REPORT INFORMATION
  Report Type: Spontaneous
  Country: GB (occurrence: GB)
  Receive Date: 20200205
  Receipt Date: 20200205
  Transmission Date: 20200409
  Serious: Yes (Disabling)
  Sender: FDA-Public Use
  Company Number: GB-009507513-1907GBR003046

PATIENT
  Age: 75 Year
  Sex: Female
  Weight: 70.8 kg

DRUGS (8)
  1. SIMVASTATIN. [Suspect]
     Active Substance: SIMVASTATIN
     Dosage: 40 MILLIGRAM
     Dates: start: 20140805, end: 20190405
  2. ALLOPURINOL. [Concomitant]
     Active Substance: ALLOPURINOL
     Dosage: 100 MILLIGRAM, QD
     Dates: start: 20190225
  3. PHOLCODINE [Concomitant]
     Active Substance: PHOLCODINE
     Dosage: 5 MILLILITER, AS DIRECTED
     Dates: start: 20190130
  4. COLCHICINE. [Concomitant]
     Active Substance: COLCHICINE
     Dosage: 1000 MICROGRAM, QD, AS PROPHYLAXIS WITH ALLOPURINOL
     Dates: start: 20190225
  5. OMEPRAZOLE. [Concomitant]
     Active Substance: OMEPRAZOLE
     Dosage: AS DIRECTED. FORMULATION: GASTRO-RESISTANT CAPSULE
     Dates: start: 20190211
  6. PROPRANOLOL [Concomitant]
     Active Substance: PROPRANOLOL HYDROCHLORIDE
     Indication: ANXIETY
     Dosage: 80 MILLIGRAM, QD
     Dates: start: 20190314
  7. COLCHICINE. [Concomitant]
     Active Substance: COLCHICINE
     Indication: GOUT
     Dosage: DOSE: 1500 MICROGRAM, QD; FOR UP TO 4 DAYS, COURSE CAN BE REPEATED AFTER 3 DAYS IF NEEDED.
     Dates: start: 20190220
  8. METFORMIN [Concomitant]
     Active Substance: METFORMIN HYDROCHLORIDE
     Dosage: 2000 MILLIGRAM, QD
     Dates: start: 20190304

REACTIONS (2)
  - Blood creatine phosphokinase increased [Recovered/Resolved]
  - Pain [Recovered/Resolved]

NARRATIVE: CASE EVENT DATE: 20190405
